FAERS Safety Report 12984766 (Version 2)
Quarter: 2017Q1

REPORT INFORMATION
  Report Type: Spontaneous
  Country: US (occurrence: US)
  Receive Date: 20161129
  Receipt Date: 20170127
  Transmission Date: 20170428
  Serious: No
  Sender: FDA-Public Use
  Company Number: US-SHIRE-US201618002

PATIENT
  Age: 80 Year
  Sex: Female
  Weight: 54.42 kg

DRUGS (1)
  1. XIIDRA [Suspect]
     Active Substance: LIFITEGRAST
     Indication: DRY EYE
     Dosage: 1 GTT (BOTH EYES), 2X/DAY:BID
     Route: 047
     Dates: start: 20161025, end: 20161122

REACTIONS (5)
  - Foreign body sensation in eyes [Recovered/Resolved]
  - Dysgeusia [Unknown]
  - Blood pressure increased [Recovered/Resolved]
  - Eye discharge [Unknown]
  - Instillation site reaction [Recovered/Resolved]

NARRATIVE: CASE EVENT DATE: 201610
